FAERS Safety Report 9008099 (Version 1)
Quarter: 2013Q1

REPORT INFORMATION
  Report Type: Spontaneous
  Country: US (occurrence: US)
  Receive Date: 20130111
  Receipt Date: 20130111
  Transmission Date: 20140127
  Serious: No
  Sender: FDA-Public Use
  Company Number: US-MYLANLABS-2012S1023145

PATIENT
  Age: 83 Year
  Sex: Male

DRUGS (5)
  1. METOPROLOL SUCCINATE EXTENDED-RELEAS E [Suspect]
     Indication: BLOOD PRESSURE INCREASED
     Route: 048
     Dates: start: 201202
  2. LISINOPRIL [Concomitant]
     Indication: BLOOD PRESSURE INCREASED
  3. SIMVASTATIN [Concomitant]
     Indication: BLOOD CHOLESTEROL INCREASED
  4. UNITHROID [Concomitant]
     Indication: HYPOTHYROIDISM
  5. FINASTERIDE [Concomitant]
     Indication: PROSTATE INFECTION

REACTIONS (2)
  - Feeling abnormal [Recovered/Resolved]
  - Dysgeusia [Recovered/Resolved]
